FAERS Safety Report 16629371 (Version 1)
Quarter: 2019Q3

REPORT INFORMATION
  Report Type: Spontaneous
  Country: US (occurrence: US)
  Receive Date: 20190612
  Receipt Date: 20190612
  Transmission Date: 20191004
  Serious: Yes (Hospitalization, Other)
  Sender: FDA-Public Use
  Company Number: None

PATIENT
  Age: 57 Year
  Sex: Female
  Weight: 80.5 kg

DRUGS (9)
  1. MARINOL [Suspect]
     Active Substance: DRONABINOL
  2. APIXABAN [Suspect]
     Active Substance: APIXABAN
     Indication: DEEP VEIN THROMBOSIS
     Dosage: ?          OTHER DOSE:2.5 OR 5.0 MG;?
     Route: 048
     Dates: start: 20180823, end: 20190528
  3. LYRICA [Suspect]
     Active Substance: PREGABALIN
  4. ASPIRIN. [Suspect]
     Active Substance: ASPIRIN
  5. CARBOPLATIN. [Concomitant]
     Active Substance: CARBOPLATIN
  6. LETROZOLE. [Suspect]
     Active Substance: LETROZOLE
  7. SYNTHROID [Suspect]
     Active Substance: LEVOTHYROXINE SODIUM
  8. DECADRON [Suspect]
     Active Substance: DEXAMETHASONE
  9. GEMCITABINE. [Concomitant]
     Active Substance: GEMCITABINE

REACTIONS (14)
  - Pulmonary embolism [None]
  - Escherichia infection [None]
  - Deep vein thrombosis [None]
  - Embolism [None]
  - Troponin increased [None]
  - Peritoneal disorder [None]
  - Cerebrovascular accident [None]
  - Cardiac valve vegetation [None]
  - Malignant ascites [None]
  - Culture urine positive [None]
  - Urinary tract infection [None]
  - Small intestinal obstruction [None]
  - Fluid overload [None]
  - Hypokalaemia [None]

NARRATIVE: CASE EVENT DATE: 20190608
